FAERS Safety Report 18524703 (Version 1)
Quarter: 2020Q4

REPORT INFORMATION
  Report Type: Spontaneous
  Country: DE (occurrence: DE)
  Receive Date: 20201119
  Receipt Date: 20201119
  Transmission Date: 20210114
  Serious: Yes (Hospitalization, Other)
  Sender: FDA-Public Use
  Company Number: DE-ASTRAZENECA-2020SF51847

PATIENT
  Sex: Female

DRUGS (6)
  1. GLYCOPYRRONIUM [Concomitant]
     Active Substance: GLYCOPYRRONIUM
  2. BUDESONID / FORMOTEROL [Suspect]
     Active Substance: BUDESONIDE\FORMOTEROL
     Dosage: 160/4.5, 2X3
     Route: 055
  3. TIOTROPIUM [Concomitant]
     Active Substance: TIOTROPIUM
     Dosage: 1X1
  4. REPROTEROL/DNCG [Concomitant]
  5. SALBUTAMOL [Concomitant]
     Active Substance: ALBUTEROL
     Dosage: IF REQUIRED
  6. MONTELUKAST [Concomitant]
     Active Substance: MONTELUKAST SODIUM
     Dosage: 1X1

REACTIONS (7)
  - Asthma [Recovered/Resolved]
  - Forced expiratory volume decreased [Unknown]
  - Aspiration [Unknown]
  - Bronchial secretion retention [Unknown]
  - Bronchopulmonary aspergillosis allergic [Unknown]
  - Eosinophilia [Unknown]
  - Chronic sinusitis [Unknown]
